FAERS Safety Report 11132259 (Version 1)
Quarter: 2015Q2

REPORT INFORMATION
  Report Type: Spontaneous
  Country: US (occurrence: US)
  Receive Date: 20150522
  Receipt Date: 20150522
  Transmission Date: 20150821
  Serious: No
  Sender: FDA-Public Use
  Company Number: US-BAYER-2015-262376

PATIENT
  Age: 77 Year
  Sex: Female
  Weight: 75 kg

DRUGS (1)
  1. ALEVE [Suspect]
     Active Substance: NAPROXEN SODIUM
     Indication: INFLAMMATION
     Dosage: 2 DF, UNK
     Route: 048

REACTIONS (2)
  - Abdominal pain upper [Recovered/Resolved]
  - Off label use [None]

NARRATIVE: CASE EVENT DATE: 20150519
